FAERS Safety Report 5899560-3 (Version None)
Quarter: 2008Q3

REPORT INFORMATION
  Report Type: 
  Country: None (occurrence: None)
  Receive Date: 20080926
  Receipt Date: 20080918
  Transmission Date: 20090109
  Serious: Yes (Other)
  Sender: FDA-Public Use
  Company Number: PHNU2008DE01651

PATIENT
  Sex: Male

DRUGS (7)
  1. ZOMETA [Suspect]
     Indication: PROSTATE CANCER
     Dosage: 4 MG, QMO
     Route: 042
     Dates: start: 20060701
  2. ELIGARD [Concomitant]
     Indication: PROSTATE CANCER
     Dosage: 22.5 MG, Q3MO
     Dates: start: 20050701
  3. SIMVASTATIN [Concomitant]
     Dosage: DAILY AT THE EVENING
  4. METOPROLOL SUCCINATE [Concomitant]
     Dosage: 1/2 EVERY MORNING
  5. GLIMEPIRIDE [Concomitant]
     Dosage: EVERY MORINING 1/2
  6. METFORMIN HCL [Concomitant]
     Dosage: EVERY EVENING 1/2
  7. LIPIDIL [Concomitant]
     Dosage: EVERY EVENING 1

REACTIONS (4)
  - DENTAL TREATMENT [None]
  - NEOPLASM MALIGNANT [None]
  - OSTEONECROSIS [None]
  - TOOTH EXTRACTION [None]
